FAERS Safety Report 5904775-1 (Version None)
Quarter: 2008Q3

REPORT INFORMATION
  Report Type: 
  Country: None (occurrence: None)
  Receive Date: 20080909
  Receipt Date: 20080513
  Transmission Date: 20090109
  Serious: Yes (Other)
  Sender: FDA-Public Use
  Company Number: 163-20785-08050755

PATIENT
  Sex: Male

DRUGS (3)
  1. THALOMID [Suspect]
     Indication: MULTIPLE MYELOMA
     Dosage: 50 MG, 1 IN 1 D, ORAL : 100 MG, 2 IN 1 D, ORAL ; 200 MG, 4 IN 1 D, ORAL
     Route: 048
     Dates: start: 20050510
  2. THALOMID [Suspect]
     Indication: MULTIPLE MYELOMA
     Dosage: 50 MG, 1 IN 1 D, ORAL : 100 MG, 2 IN 1 D, ORAL ; 200 MG, 4 IN 1 D, ORAL
     Route: 048
     Dates: start: 20051227
  3. THALOMID [Suspect]
     Indication: MULTIPLE MYELOMA
     Dosage: 50 MG, 1 IN 1 D, ORAL : 100 MG, 2 IN 1 D, ORAL ; 200 MG, 4 IN 1 D, ORAL
     Route: 048
     Dates: start: 20080809

REACTIONS (1)
  - THROMBOSIS [None]
